FAERS Safety Report 18361387 (Version 2)
Quarter: 2020Q4

REPORT INFORMATION
  Report Type: Spontaneous
  Country: BR (occurrence: BR)
  Receive Date: 20201008
  Receipt Date: 20201016
  Transmission Date: 20210114
  Serious: Yes (Death, Hospitalization, Other)
  Sender: FDA-Public Use
  Company Number: BR-BAYER-2020-212624

PATIENT
  Age: 76 Year
  Sex: Male

DRUGS (1)
  1. XOFIGO [Suspect]
     Active Substance: RADIUM RA-223 DICHLORIDE
     Dosage: UNK
     Dates: start: 20200717, end: 20200717

REACTIONS (4)
  - Thrombocytopenia [Fatal]
  - Anaemia [None]
  - Seizure [Fatal]
  - Gastric haemorrhage [Fatal]

NARRATIVE: CASE EVENT DATE: 20200806
